FAERS Safety Report 9675916 (Version 2)
Quarter: 2013Q4

REPORT INFORMATION
  Report Type: Spontaneous
  Country: JP (occurrence: JP)
  Receive Date: 20131107
  Receipt Date: 20131118
  Transmission Date: 20140711
  Serious: Yes (Hospitalization)
  Sender: FDA-Public Use
  Company Number: JP-B.I. PHARMACEUTICALS,INC./RIDGEFIELD-2013-BI-35420NB

PATIENT
  Age: 80 Year
  Sex: Female

DRUGS (3)
  1. MICARDIS [Suspect]
     Route: 048
  2. CELECOX [Suspect]
     Dosage: 200 MG
     Route: 048
  3. MUCOSTA [Concomitant]
     Route: 048

REACTIONS (3)
  - Altered state of consciousness [Not Recovered/Not Resolved]
  - Hyperammonaemia [Unknown]
  - Blood bilirubin increased [Unknown]
